FAERS Safety Report 9877885 (Version 2)
Quarter: 2014Q2

REPORT INFORMATION
  Report Type: Spontaneous
  Country: US (occurrence: None)
  Receive Date: 20140204
  Receipt Date: 20140523
  Transmission Date: 20141212
  Serious: Yes (Hospitalization)
  Sender: FDA-Public Use
  Company Number: 2014-US-000805

PATIENT
  Age: 65 Year
  Sex: Female

DRUGS (4)
  1. XYREM [Suspect]
     Indication: FIBROMYALGIA
     Route: 048
     Dates: start: 200603
  2. LINACLOTIDE [Suspect]
     Indication: PRODUCT USED FOR UNKNOWN INDICATION
  3. IMITREX (SUMATRIPTAN) [Suspect]
     Indication: PRODUCT USED FOR UNKNOWN INDICATION
  4. NUCYNTA [Suspect]
     Indication: PRODUCT USED FOR UNKNOWN INDICATION

REACTIONS (3)
  - Perforated ulcer [None]
  - Gastric ulcer surgery [None]
  - Off label use [None]
